FAERS Safety Report 6301311-5 (Version None)
Quarter: 2009Q3

REPORT INFORMATION
  Report Type: 
  Country: None (occurrence: None)
  Receive Date: 20090805
  Receipt Date: 20090805
  Transmission Date: 20100115
  Serious: Yes (Life-Threatening, Hospitalization, Other)
  Sender: FDA-Public Use
  Company Number: None

PATIENT
  Age: 54 Year
  Sex: Female
  Weight: 62.5964 kg

DRUGS (1)
  1. LEVAQUIN [Suspect]
     Indication: SINUSITIS
     Dates: start: 20090327, end: 20090402

REACTIONS (18)
  - BLOOD PRESSURE INCREASED [None]
  - DEPERSONALISATION [None]
  - DEPRESSION [None]
  - DYSPEPSIA [None]
  - DYSPNOEA [None]
  - FEELING ABNORMAL [None]
  - GAIT DISTURBANCE [None]
  - MALAISE [None]
  - MUSCLE DISORDER [None]
  - MYALGIA [None]
  - PAIN IN EXTREMITY [None]
  - PARAESTHESIA [None]
  - RASH [None]
  - SENSORY DISTURBANCE [None]
  - SUICIDAL IDEATION [None]
  - TENDON DISORDER [None]
  - URINARY TRACT DISORDER [None]
  - VISUAL IMPAIRMENT [None]
